APPROVED DRUG PRODUCT: OLYSIO
Active Ingredient: SIMEPREVIR SODIUM
Strength: EQ 150MG BASE
Dosage Form/Route: CAPSULE;ORAL
Application: N205123 | Product #001
Applicant: JANSSEN PRODUCTS LP
Approved: Nov 22, 2013 | RLD: Yes | RS: No | Type: DISCN

PATENTS:
Patent 8349869 | Expires: Jul 28, 2026
Patent 8754106 | Expires: Jul 28, 2026
Patent 8741926 | Expires: Jul 28, 2026
Patent 9040562 | Expires: Jul 28, 2026
Patent 9856265 | Expires: Jul 28, 2026
Patent 8148399 | Expires: Sep 5, 2029
Patent 9353103 | Expires: Jul 28, 2026
Patent 9623022 | Expires: Jul 28, 2026